FAERS Safety Report 16122176 (Version 1)
Quarter: 2019Q1

REPORT INFORMATION
  Report Type: Spontaneous
  Country: ES (occurrence: ES)
  Receive Date: 20190327
  Receipt Date: 20190327
  Transmission Date: 20190418
  Serious: Yes (Hospitalization, Other)
  Sender: FDA-Public Use
  Company Number: ES-AUROBINDO-AUR-APL-2019-016834

PATIENT

DRUGS (3)
  1. METAMIZOLE [Concomitant]
     Active Substance: METAMIZOLE
     Indication: PRODUCT USED FOR UNKNOWN INDICATION
     Dosage: 0.4 MILLIGRAM, 0,4 G CADA 8 HORAS
     Route: 042
     Dates: start: 20180406, end: 20180515
  2. LINEZOLID. [Suspect]
     Active Substance: LINEZOLID
     Indication: DEVICE RELATED INFECTION
     Dosage: 600 MILLIGRAM, 12 HOUR, 600 MG CADA 12 HORAS
     Route: 048
     Dates: start: 20180507, end: 20180515
  3. DOXAZOSIN [Concomitant]
     Active Substance: DOXAZOSIN\DOXAZOSIN MESYLATE
     Indication: PRODUCT USED FOR UNKNOWN INDICATION
     Dosage: 4 MILLIGRAM, ONCE A DAY, 4 MG DIA
     Route: 048
     Dates: start: 20180406, end: 20180515

REACTIONS (2)
  - Lactic acidosis [Recovered/Resolved]
  - Acute kidney injury [Recovered/Resolved]

NARRATIVE: CASE EVENT DATE: 20180514
